FAERS Safety Report 25811022 (Version 1)
Quarter: 2025Q3

REPORT INFORMATION
  Report Type: Spontaneous
  Country: US (occurrence: US)
  Receive Date: 20250917
  Receipt Date: 20250917
  Transmission Date: 20251021
  Serious: Yes (Death)
  Sender: SPECGX
  Company Number: US-SPECGX-T202501582

PATIENT
  Age: 49 Year

DRUGS (1)
  1. NALTREXONE [Suspect]
     Active Substance: NALTREXONE
     Indication: Drug use disorder
     Route: 048

REACTIONS (1)
  - Cardiac death [Fatal]
